FAERS Safety Report 24142423 (Version 2)
Quarter: 2024Q3

REPORT INFORMATION
  Report Type: Report from Study
  Country: US (occurrence: US)
  Receive Date: 20240726
  Receipt Date: 20240801
  Transmission Date: 20241017
  Serious: Yes (Death)
  Sender: JOHNSON AND JOHNSON
  Company Number: US-JNJFOC-20240760768

PATIENT
  Age: 3 Decade
  Sex: Male

DRUGS (4)
  1. SPRAVATO [Suspect]
     Active Substance: ESKETAMINE
     Indication: Depression
     Dosage: ^84 MG, 108 TOTAL DOSES^
     Dates: start: 20220423, end: 20240608
  2. CYMBALTA [Concomitant]
     Active Substance: DULOXETINE HYDROCHLORIDE
  3. GABAPENTIN [Concomitant]
     Active Substance: GABAPENTIN
  4. BACLOFEN [Concomitant]
     Active Substance: BACLOFEN

REACTIONS (3)
  - Death [Fatal]
  - Accident [Unknown]
  - Weight decreased [Unknown]

NARRATIVE: CASE EVENT DATE: 20240101
